FAERS Safety Report 12253526 (Version 1)
Quarter: 2016Q2

REPORT INFORMATION
  Report Type: Spontaneous
  Country: US (occurrence: None)
  Receive Date: 20160408
  Receipt Date: 20160408
  Transmission Date: 20160815
  Serious: No
  Sender: FDA-Public Use
  Company Number: None

PATIENT
  Age: 56 Year
  Sex: Male

DRUGS (1)
  1. NEXAVAR [Suspect]
     Active Substance: SORAFENIB
     Indication: HEPATIC CANCER
     Route: 048
     Dates: start: 20160316

REACTIONS (5)
  - Blister [None]
  - Headache [None]
  - Fatigue [None]
  - Abdominal pain upper [None]
  - Oral pain [None]

NARRATIVE: CASE EVENT DATE: 201603
